FAERS Safety Report 8795993 (Version 9)
Quarter: 2016Q4

REPORT INFORMATION
  Report Type: Spontaneous
  Country: US (occurrence: US)
  Receive Date: 20120919
  Receipt Date: 20161125
  Transmission Date: 20170207
  Serious: Yes (Hospitalization)
  Sender: FDA-Public Use
  Company Number: US-ASTRAZENECA-2012SE38260

PATIENT
  Age: 38 Year
  Sex: Male
  Weight: 107 kg

DRUGS (83)
  1. SEROQUEL [Suspect]
     Active Substance: QUETIAPINE FUMARATE
     Indication: OBSESSIVE-COMPULSIVE DISORDER
     Dosage: 200 MG DURING DAY AND 200 MG DURING NIGHT, 400 MG DAILY
     Route: 048
  2. SEROQUEL [Suspect]
     Active Substance: QUETIAPINE FUMARATE
     Indication: ANGER
     Dosage: 200 MG DURING DAY AND 200 MG DURING NIGHT, 400 MG DAILY
     Route: 048
  3. SEROQUEL [Suspect]
     Active Substance: QUETIAPINE FUMARATE
     Indication: MAJOR DEPRESSION
     Dosage: 200.0MG UNKNOWN
     Route: 048
     Dates: start: 2007, end: 201401
  4. SEROQUEL [Suspect]
     Active Substance: QUETIAPINE FUMARATE
     Indication: OBSESSIVE-COMPULSIVE DISORDER
     Dosage: 200.0MG UNKNOWN
     Route: 048
     Dates: start: 2007, end: 201401
  5. SEROQUEL [Suspect]
     Active Substance: QUETIAPINE FUMARATE
     Indication: MAJOR DEPRESSION
     Dosage: 200.0MG UNKNOWN
     Route: 048
     Dates: start: 201401
  6. SEROQUEL [Suspect]
     Active Substance: QUETIAPINE FUMARATE
     Indication: POST-TRAUMATIC STRESS DISORDER
     Dosage: 200.0MG UNKNOWN
     Route: 048
     Dates: start: 201401
  7. SEROQUEL [Suspect]
     Active Substance: QUETIAPINE FUMARATE
     Indication: AFFECTIVE DISORDER
     Dosage: 200.0MG UNKNOWN
     Route: 048
     Dates: start: 201401
  8. SEROQUEL [Suspect]
     Active Substance: QUETIAPINE FUMARATE
     Indication: ANXIETY
     Dosage: 200.0MG UNKNOWN
     Route: 048
     Dates: start: 201401, end: 20140425
  9. SEROQUEL [Suspect]
     Active Substance: QUETIAPINE FUMARATE
     Indication: OBSESSIVE-COMPULSIVE DISORDER
     Dosage: 200.0MG UNKNOWN
     Route: 048
     Dates: start: 201401, end: 20140425
  10. SEROQUEL [Suspect]
     Active Substance: QUETIAPINE FUMARATE
     Indication: BIPOLAR DISORDER
     Dosage: 200.0MG UNKNOWN
     Route: 048
     Dates: start: 201401, end: 20140425
  11. SEROQUEL [Suspect]
     Active Substance: QUETIAPINE FUMARATE
     Indication: MAJOR DEPRESSION
     Dosage: 200.0MG UNKNOWN
     Route: 048
  12. SEROQUEL [Suspect]
     Active Substance: QUETIAPINE FUMARATE
     Indication: AFFECTIVE DISORDER
     Dosage: 200.0MG UNKNOWN
     Route: 048
  13. CLONAZEPAM. [Suspect]
     Active Substance: CLONAZEPAM
     Route: 065
  14. SEROQUEL [Suspect]
     Active Substance: QUETIAPINE FUMARATE
     Indication: POST-TRAUMATIC STRESS DISORDER
     Dosage: 200 MG DURING DAY AND 200 MG DURING NIGHT, 400 MG DAILY
     Route: 048
  15. SEROQUEL [Suspect]
     Active Substance: QUETIAPINE FUMARATE
     Indication: DEPRESSION
     Dosage: 200 MG DURING DAY AND 200 MG DURING NIGHT, 400 MG DAILY
     Route: 048
  16. SEROQUEL [Suspect]
     Active Substance: QUETIAPINE FUMARATE
     Indication: POST-TRAUMATIC STRESS DISORDER
     Dosage: 200.0MG UNKNOWN
     Route: 048
     Dates: start: 2007, end: 201401
  17. SEROQUEL [Suspect]
     Active Substance: QUETIAPINE FUMARATE
     Indication: BIPOLAR DISORDER
     Dosage: 200.0MG UNKNOWN
     Route: 048
     Dates: start: 2007, end: 201401
  18. SEROQUEL [Suspect]
     Active Substance: QUETIAPINE FUMARATE
     Indication: MENTAL DISORDER
     Dosage: 400.0MG UNKNOWN
     Route: 048
     Dates: start: 2007
  19. SEROQUEL [Suspect]
     Active Substance: QUETIAPINE FUMARATE
     Indication: ANXIETY
     Dosage: 200.0MG UNKNOWN
     Route: 048
  20. SEROQUEL [Suspect]
     Active Substance: QUETIAPINE FUMARATE
     Indication: DEPRESSION
     Dosage: 200.0MG UNKNOWN
     Route: 048
  21. FENTANYL. [Concomitant]
     Active Substance: FENTANYL
     Indication: PAIN
     Route: 061
     Dates: start: 201310
  22. XANAX [Concomitant]
     Active Substance: ALPRAZOLAM
     Indication: ANXIETY
     Dosage: 1 MG TWICE DAILY AS NEEDED
  23. SEROQUEL [Suspect]
     Active Substance: QUETIAPINE FUMARATE
     Indication: POST-TRAUMATIC STRESS DISORDER
     Dosage: 600.0MG UNKNOWN
     Route: 048
     Dates: start: 2006, end: 2007
  24. SEROQUEL [Suspect]
     Active Substance: QUETIAPINE FUMARATE
     Indication: DEPRESSION
     Dosage: 600.0MG UNKNOWN
     Route: 048
     Dates: start: 2006, end: 2007
  25. SEROQUEL [Suspect]
     Active Substance: QUETIAPINE FUMARATE
     Indication: AFFECTIVE DISORDER
     Dosage: 200.0MG UNKNOWN
     Route: 048
     Dates: start: 2007, end: 201401
  26. SEROQUEL [Suspect]
     Active Substance: QUETIAPINE FUMARATE
     Indication: POST-TRAUMATIC STRESS DISORDER
     Dosage: 400.0MG UNKNOWN
     Route: 048
     Dates: start: 2007
  27. SEROQUEL [Suspect]
     Active Substance: QUETIAPINE FUMARATE
     Indication: ANXIETY
     Dosage: 200.0MG UNKNOWN
     Route: 048
     Dates: start: 201401
  28. SEROQUEL [Suspect]
     Active Substance: QUETIAPINE FUMARATE
     Indication: OBSESSIVE-COMPULSIVE DISORDER
     Dosage: 200.0MG UNKNOWN
     Route: 048
     Dates: start: 201401
  29. SEROQUEL [Suspect]
     Active Substance: QUETIAPINE FUMARATE
     Indication: BIPOLAR DISORDER
     Dosage: 200.0MG UNKNOWN
     Route: 048
     Dates: start: 201401
  30. SEROQUEL [Suspect]
     Active Substance: QUETIAPINE FUMARATE
     Indication: POST-TRAUMATIC STRESS DISORDER
     Dosage: 200.0MG UNKNOWN
     Route: 048
     Dates: start: 201401, end: 20140425
  31. SEROQUEL [Suspect]
     Active Substance: QUETIAPINE FUMARATE
     Indication: MENTAL DISORDER
     Dosage: 200.0MG UNKNOWN
     Route: 048
  32. REMERON [Suspect]
     Active Substance: MIRTAZAPINE
     Indication: SLEEP DISORDER
     Route: 065
  33. ECOTRIN [Concomitant]
     Active Substance: ASPIRIN
  34. ALBUTEROL. [Concomitant]
     Active Substance: ALBUTEROL
     Dosage: 90MCG TWO PUFFS EVERY FOUR HOURS AS NEEDED
  35. SEROQUEL [Suspect]
     Active Substance: QUETIAPINE FUMARATE
     Indication: ANXIETY
     Dosage: 600.0MG UNKNOWN
     Route: 048
     Dates: start: 2006, end: 2007
  36. SEROQUEL [Suspect]
     Active Substance: QUETIAPINE FUMARATE
     Indication: BIPOLAR DISORDER
     Dosage: 600.0MG UNKNOWN
     Route: 048
     Dates: start: 2006, end: 2007
  37. SEROQUEL [Suspect]
     Active Substance: QUETIAPINE FUMARATE
     Indication: ANGER
     Dosage: 200.0MG UNKNOWN
     Route: 048
     Dates: start: 2007, end: 201401
  38. SEROQUEL [Suspect]
     Active Substance: QUETIAPINE FUMARATE
     Indication: DEPRESSION
     Dosage: 200.0MG UNKNOWN
     Route: 048
     Dates: start: 201401
  39. SEROQUEL [Suspect]
     Active Substance: QUETIAPINE FUMARATE
     Indication: ANGER
     Dosage: 200.0MG UNKNOWN
     Route: 048
     Dates: start: 201401, end: 20140425
  40. SEROQUEL [Suspect]
     Active Substance: QUETIAPINE FUMARATE
     Indication: DEPRESSION
     Dosage: 200.0MG UNKNOWN
     Route: 048
     Dates: start: 201401, end: 20140425
  41. SEROQUEL [Suspect]
     Active Substance: QUETIAPINE FUMARATE
     Indication: OBSESSIVE-COMPULSIVE DISORDER
     Dosage: 200.0MG UNKNOWN
     Route: 048
  42. REMERON [Suspect]
     Active Substance: MIRTAZAPINE
     Indication: DEPRESSION
     Route: 065
  43. REMERON [Suspect]
     Active Substance: MIRTAZAPINE
     Indication: ANXIETY
     Route: 065
  44. SEROQUEL [Suspect]
     Active Substance: QUETIAPINE FUMARATE
     Indication: OBSESSIVE-COMPULSIVE DISORDER
     Dosage: 600.0MG UNKNOWN
     Route: 048
     Dates: start: 2006, end: 2007
  45. SEROQUEL [Suspect]
     Active Substance: QUETIAPINE FUMARATE
     Indication: MENTAL DISORDER
     Dosage: 200.0MG UNKNOWN
     Route: 048
     Dates: start: 2007, end: 201401
  46. SEROQUEL [Suspect]
     Active Substance: QUETIAPINE FUMARATE
     Indication: DEPRESSION
     Dosage: 400.0MG UNKNOWN
     Route: 048
     Dates: start: 2007
  47. SEROQUEL [Suspect]
     Active Substance: QUETIAPINE FUMARATE
     Indication: BIPOLAR DISORDER
     Dosage: 400.0MG UNKNOWN
     Route: 048
     Dates: start: 2007
  48. SEROQUEL [Suspect]
     Active Substance: QUETIAPINE FUMARATE
     Indication: AFFECTIVE DISORDER
     Dosage: 200.0MG UNKNOWN
     Route: 048
     Dates: start: 201401, end: 20140425
  49. SEROQUEL [Suspect]
     Active Substance: QUETIAPINE FUMARATE
     Indication: MENTAL DISORDER
     Dosage: 200.0MG UNKNOWN
     Route: 048
     Dates: start: 201401, end: 20140425
  50. SEROQUEL [Suspect]
     Active Substance: QUETIAPINE FUMARATE
     Indication: BIPOLAR DISORDER
     Dosage: 200.0MG UNKNOWN
     Route: 048
  51. REMERON [Suspect]
     Active Substance: MIRTAZAPINE
     Indication: ANXIETY
     Route: 048
     Dates: start: 2007
  52. SEROQUEL [Suspect]
     Active Substance: QUETIAPINE FUMARATE
     Indication: ANXIETY
     Dosage: 200 MG DURING DAY AND 200 MG DURING NIGHT, 400 MG DAILY
     Route: 048
  53. SEROQUEL [Suspect]
     Active Substance: QUETIAPINE FUMARATE
     Indication: AFFECTIVE DISORDER
     Dosage: 200 MG DURING DAY AND 200 MG DURING NIGHT, 400 MG DAILY
     Route: 048
  54. SEROQUEL [Suspect]
     Active Substance: QUETIAPINE FUMARATE
     Indication: MAJOR DEPRESSION
     Dosage: 600.0MG UNKNOWN
     Route: 048
     Dates: start: 2006, end: 2007
  55. SEROQUEL [Suspect]
     Active Substance: QUETIAPINE FUMARATE
     Indication: AFFECTIVE DISORDER
     Dosage: 600.0MG UNKNOWN
     Route: 048
     Dates: start: 2006, end: 2007
  56. SEROQUEL [Suspect]
     Active Substance: QUETIAPINE FUMARATE
     Indication: DEPRESSION
     Dosage: 200.0MG UNKNOWN
     Route: 048
     Dates: start: 2007, end: 201401
  57. SEROQUEL [Suspect]
     Active Substance: QUETIAPINE FUMARATE
     Indication: ANXIETY
     Dosage: 400.0MG UNKNOWN
     Route: 048
     Dates: start: 2007
  58. SEROQUEL [Suspect]
     Active Substance: QUETIAPINE FUMARATE
     Indication: AFFECTIVE DISORDER
     Dosage: 400.0MG UNKNOWN
     Route: 048
     Dates: start: 2007
  59. SEROQUEL [Suspect]
     Active Substance: QUETIAPINE FUMARATE
     Indication: OBSESSIVE-COMPULSIVE DISORDER
     Dosage: 400.0MG UNKNOWN
     Route: 048
     Dates: start: 2007
  60. SEROQUEL [Suspect]
     Active Substance: QUETIAPINE FUMARATE
     Indication: MENTAL DISORDER
     Dosage: 200.0MG UNKNOWN
     Route: 048
     Dates: start: 201401
  61. SEROQUEL [Suspect]
     Active Substance: QUETIAPINE FUMARATE
     Indication: POST-TRAUMATIC STRESS DISORDER
     Dosage: 200.0MG UNKNOWN
     Route: 048
  62. SEROQUEL [Suspect]
     Active Substance: QUETIAPINE FUMARATE
     Indication: ANGER
     Dosage: 200.0MG UNKNOWN
     Route: 048
  63. SIMVASTATIN. [Concomitant]
     Active Substance: SIMVASTATIN
     Indication: BLOOD CHOLESTEROL ABNORMAL
     Route: 048
  64. SEROQUEL [Suspect]
     Active Substance: QUETIAPINE FUMARATE
     Indication: MAJOR DEPRESSION
     Dosage: 200 MG DURING DAY AND 200 MG DURING NIGHT, 400 MG DAILY
     Route: 048
  65. SEROQUEL [Suspect]
     Active Substance: QUETIAPINE FUMARATE
     Indication: BIPOLAR DISORDER
     Dosage: 200 MG DURING DAY AND 200 MG DURING NIGHT, 400 MG DAILY
     Route: 048
  66. SEROQUEL [Suspect]
     Active Substance: QUETIAPINE FUMARATE
     Indication: ANGER
     Dosage: 400.0MG UNKNOWN
     Route: 048
     Dates: start: 2007
  67. SEROQUEL [Suspect]
     Active Substance: QUETIAPINE FUMARATE
     Indication: ANGER
     Dosage: 200.0MG UNKNOWN
     Route: 048
     Dates: start: 201401
  68. REMERON [Suspect]
     Active Substance: MIRTAZAPINE
     Indication: DEPRESSION
     Route: 048
     Dates: start: 2007
  69. SIMVASTATIN. [Concomitant]
     Active Substance: SIMVASTATIN
     Indication: HYPERLIPIDAEMIA
     Route: 048
  70. SIMVASTATIN. [Concomitant]
     Active Substance: SIMVASTATIN
     Indication: HYPERLIPIDAEMIA
     Route: 048
  71. OXYCODONE [Concomitant]
     Active Substance: OXYCODONE
     Indication: PAIN
     Route: 048
     Dates: start: 2013
  72. IBUPROFEN. [Concomitant]
     Active Substance: IBUPROFEN
     Indication: PAIN
  73. SEROQUEL [Suspect]
     Active Substance: QUETIAPINE FUMARATE
     Indication: MENTAL DISORDER
     Dosage: 200 MG DURING DAY AND 200 MG DURING NIGHT, 400 MG DAILY
     Route: 048
  74. SEROQUEL [Suspect]
     Active Substance: QUETIAPINE FUMARATE
     Indication: MENTAL DISORDER
     Dosage: 600.0MG UNKNOWN
     Route: 048
     Dates: start: 2006, end: 2007
  75. SEROQUEL [Suspect]
     Active Substance: QUETIAPINE FUMARATE
     Indication: ANGER
     Dosage: 600.0MG UNKNOWN
     Route: 048
     Dates: start: 2006, end: 2007
  76. SEROQUEL [Suspect]
     Active Substance: QUETIAPINE FUMARATE
     Indication: ANXIETY
     Dosage: 200.0MG UNKNOWN
     Route: 048
     Dates: start: 2007, end: 201401
  77. SEROQUEL [Suspect]
     Active Substance: QUETIAPINE FUMARATE
     Indication: MAJOR DEPRESSION
     Dosage: 400.0MG UNKNOWN
     Route: 048
     Dates: start: 2007
  78. SEROQUEL [Suspect]
     Active Substance: QUETIAPINE FUMARATE
     Indication: MAJOR DEPRESSION
     Dosage: 200.0MG UNKNOWN
     Route: 048
     Dates: start: 201401, end: 20140425
  79. LISINOPRIL. [Suspect]
     Active Substance: LISINOPRIL
     Indication: HYPERTENSION
     Route: 048
     Dates: start: 2013
  80. REMERON [Suspect]
     Active Substance: MIRTAZAPINE
     Indication: SLEEP DISORDER
     Route: 048
     Dates: start: 2007
  81. SIMVASTATIN. [Concomitant]
     Active Substance: SIMVASTATIN
     Indication: BLOOD CHOLESTEROL ABNORMAL
     Route: 048
  82. PEPCID [Concomitant]
     Active Substance: FAMOTIDINE
     Indication: GASTROOESOPHAGEAL REFLUX DISEASE
  83. TRAZODONE [Concomitant]
     Active Substance: TRAZODONE HYDROCHLORIDE
     Indication: ANXIETY

REACTIONS (25)
  - Impatience [Unknown]
  - Disturbance in attention [Unknown]
  - Blood pressure increased [Unknown]
  - Drug dose omission [Unknown]
  - Social anxiety disorder [Unknown]
  - Panic attack [Unknown]
  - Heart rate increased [Unknown]
  - Transient ischaemic attack [Unknown]
  - Feeling abnormal [Unknown]
  - Tension [Unknown]
  - Somnolence [Unknown]
  - Off label use [Unknown]
  - Intentional product misuse [Not Recovered/Not Resolved]
  - Anxiety [Unknown]
  - Decreased activity [Unknown]
  - Post-traumatic stress disorder [Unknown]
  - Memory impairment [Unknown]
  - Gout [Not Recovered/Not Resolved]
  - Anger [Unknown]
  - Nervousness [Unknown]
  - Dizziness [Unknown]
  - Blood pressure decreased [Unknown]
  - Drug ineffective [Unknown]
  - Depression [Unknown]
  - Bipolar disorder [Unknown]

NARRATIVE: CASE EVENT DATE: 2007
